FAERS Safety Report 8094265-5 (Version None)
Quarter: 2012Q1

REPORT INFORMATION
  Report Type: 
  Country: None (occurrence: None)
  Receive Date: 20120126
  Receipt Date: 20120117
  Transmission Date: 20120608
  Serious: Yes (Other)
  Sender: FDA-Public Use
  Company Number: 2012MA000915

PATIENT
  Age: 21 Year
  Sex: Female

DRUGS (3)
  1. ESCITALOPRAM OXALATE [Suspect]
     Indication: ANXIETY
     Dosage: 20 MG;QD;PO
     Route: 048
     Dates: start: 20101101
  2. RISPERIDONE [Suspect]
     Indication: DISTURBANCE IN SOCIAL BEHAVIOUR
     Dosage: PO
     Route: 048
     Dates: start: 20100415
  3. ORPHENADRINE CITRATE [Concomitant]

REACTIONS (1)
  - OCULOGYRIC CRISIS [None]
